FAERS Safety Report 5934983-5 (Version None)
Quarter: 2008Q4

REPORT INFORMATION
  Report Type: 
  Country: None (occurrence: None)
  Receive Date: 20081030
  Receipt Date: 20081022
  Transmission Date: 20090506
  Serious: Yes (Hospitalization)
  Sender: FDA-Public Use
  Company Number: JP-RANBAXY-2008RR-18695

PATIENT
  Age: 24 Year
  Sex: Male

DRUGS (4)
  1. FLUCONAZOLE [Suspect]
     Dosage: 400 MG, QD
     Route: 048
  2. AMPHOTERICIN B [Suspect]
     Route: 042
  3. AMPHOTERICIN B [Suspect]
     Dosage: 200 MG, QD
  4. ITRACONAZOLE [Suspect]
     Dosage: 200 MG, QD
     Route: 042

REACTIONS (3)
  - DRUG INEFFECTIVE [None]
  - PLEURISY [None]
  - PNEUMONIA CRYPTOCOCCAL [None]
